FAERS Safety Report 25218876 (Version 1)
Quarter: 2025Q2

REPORT INFORMATION
  Report Type: Spontaneous
  Country: IN (occurrence: IN)
  Receive Date: 20250421
  Receipt Date: 20250421
  Transmission Date: 20250716
  Serious: Yes (Hospitalization, Other)
  Sender: ZYDUS PHARM
  Company Number: IN-CADILA HEALTHCARE LIMITED-IN-ZYDUS-122277

PATIENT

DRUGS (1)
  1. IVABRADINE [Suspect]
     Active Substance: IVABRADINE
     Indication: Sciatica
     Route: 048

REACTIONS (8)
  - Chest discomfort [Unknown]
  - Feeling abnormal [Unknown]
  - Mean arterial pressure decreased [Unknown]
  - Restlessness [Unknown]
  - Palpitations [Unknown]
  - Bradycardia [Unknown]
  - Blood pressure systolic decreased [Unknown]
  - Blood pressure diastolic decreased [Unknown]
